FAERS Safety Report 24973560 (Version 1)
Quarter: 2025Q1

REPORT INFORMATION
  Report Type: Spontaneous
  Country: US (occurrence: US)
  Receive Date: 20250216
  Receipt Date: 20250216
  Transmission Date: 20250408
  Serious: No
  Sender: Haleon PLC
  Company Number: US-HALEON-2227929

PATIENT
  Sex: Female

DRUGS (2)
  1. SENSODYNE [Suspect]
     Active Substance: POTASSIUM NITRATE\SODIUM FLUORIDE
     Indication: Hyperaesthesia teeth
  2. ARGININE\CALCIUM CARBONATE\SODIUM MONOFLUOROPHOSPHATE [Suspect]
     Active Substance: ARGININE\CALCIUM CARBONATE\SODIUM MONOFLUOROPHOSPHATE
     Indication: Hyperaesthesia teeth

REACTIONS (1)
  - Drug ineffective [Unknown]
